FAERS Safety Report 8901092 (Version 3)
Quarter: 2013Q2

REPORT INFORMATION
  Report Type: Report from Study
  Country: US (occurrence: US)
  Receive Date: 20121109
  Receipt Date: 20130607
  Transmission Date: 20140414
  Serious: No
  Sender: FDA-Public Use
  Company Number: US-ROCHE-1142022

PATIENT
  Age: 58 Year
  Sex: Female
  Weight: 86.26 kg

DRUGS (2)
  1. CAPECITABINE [Suspect]
     Indication: BREAST CANCER METASTATIC
     Route: 048
     Dates: start: 20120930, end: 201211
  2. ZOMETA [Concomitant]
     Indication: BREAST CANCER METASTATIC
     Route: 042

REACTIONS (4)
  - Headache [Unknown]
  - Somnolence [Not Recovered/Not Resolved]
  - Diarrhoea [Recovered/Resolved]
  - Disease progression [Unknown]
